FAERS Safety Report 22941876 (Version 4)
Quarter: 2024Q1

REPORT INFORMATION
  Report Type: Report from Study
  Country: IN (occurrence: IN)
  Receive Date: 20230914
  Receipt Date: 20240221
  Transmission Date: 20240410
  Serious: No
  Sender: FDA-Public Use
  Company Number: IN-JNJFOC-20230863076

PATIENT
  Age: 66 Year
  Sex: Female

DRUGS (5)
  1. SIMPONI [Suspect]
     Active Substance: GOLIMUMAB
     Indication: Rheumatoid arthritis
     Dosage: STRENGTH: 50.00 MG / 0.50 ML
     Route: 058
     Dates: start: 20221211
  2. MEGANEURON [MECOBALAMIN] [Concomitant]
     Dosage: AFTER FOOD
  3. NUCOXIA [ETORICOXIB] [Concomitant]
  4. ROMEGA [OMEGA-3 FATTY ACIDS] [Concomitant]
  5. CEFRO [CEFATRIZINE PROPYLENEGLYCOLATE] [Concomitant]

REACTIONS (2)
  - Device issue [Unknown]
  - Product dose omission issue [Unknown]

NARRATIVE: CASE EVENT DATE: 20230825
